FAERS Safety Report 14548594 (Version 5)
Quarter: 2018Q3

REPORT INFORMATION
  Report Type: Report from Study
  Country: GB (occurrence: GB)
  Receive Date: 20180219
  Receipt Date: 20180903
  Transmission Date: 20181010
  Serious: Yes (Death, Other)
  Sender: FDA-Public Use
  Company Number: GB-BRISTOL-MYERS SQUIBB COMPANY-BMS-2016-080999

PATIENT
  Sex: Female

DRUGS (1)
  1. ABATACEPT [Suspect]
     Active Substance: ABATACEPT
     Indication: RHEUMATOID ARTHRITIS
     Dosage: 125 MG, QWK
     Route: 058
     Dates: start: 20151112

REACTIONS (6)
  - Death [Fatal]
  - Lower respiratory tract infection [Recovering/Resolving]
  - Malaise [Unknown]
  - Rheumatoid arthritis [Unknown]
  - Localised infection [Unknown]
  - Urinary tract infection [Unknown]
